FAERS Safety Report 17614054 (Version 1)
Quarter: 2020Q2

REPORT INFORMATION
  Report Type: Report from Study
  Country: IT (occurrence: IT)
  Receive Date: 20200402
  Receipt Date: 20200402
  Transmission Date: 20200713
  Serious: Yes (Other)
  Sender: FDA-Public Use
  Company Number: IT-TEVA-2020-IT-1215312

PATIENT
  Age: 68 Year
  Sex: Female
  Weight: 42 kg

DRUGS (2)
  1. GEMSOL [Suspect]
     Active Substance: GEMCITABINE HYDROCHLORIDE
     Indication: CHOLANGIOCARCINOMA
     Dates: start: 20190528
  2. CISPLATINO TEVA ITALIA 1 MG/ML CONCENTRATO PER SOLUZIONE PER INFUSIONE [Suspect]
     Active Substance: CISPLATIN
     Indication: CHOLANGIOCARCINOMA
     Dosage: 25 MG
     Dates: start: 20190528

REACTIONS (1)
  - Bone marrow toxicity [Unknown]

NARRATIVE: CASE EVENT DATE: 20200318
